FAERS Safety Report 15560284 (Version 1)
Quarter: 2018Q4

REPORT INFORMATION
  Report Type: Spontaneous
  Country: JP (occurrence: JP)
  Receive Date: 20181029
  Receipt Date: 20181029
  Transmission Date: 20190205
  Serious: Yes (Hospitalization, Other)
  Sender: FDA-Public Use
  Company Number: JP-TEVA-2018-JP-968749

PATIENT
  Age: 69 Year
  Sex: Male

DRUGS (16)
  1. 5-FLUOROURACIL [Suspect]
     Active Substance: FLUOROURACIL
     Indication: METASTASES TO PERITONEUM
     Dosage: AS PART OF 12 CYCLES OF MFOLFOX6 AND 3 CYCLES OF FOLFIRI REGIMEN
     Route: 050
  2. IRINOTECAN [Suspect]
     Active Substance: IRINOTECAN
     Indication: COLON CANCER
     Dosage: AS PART OF 3 CYCLES OF FOLFIRI REGIMEN
     Route: 065
  3. SCOPOLAMINE BUTYLBROMIDE [Concomitant]
     Active Substance: SCOPOLAMINE
     Indication: SUPPORTIVE CARE
     Route: 042
  4. OXALIPLATIN. [Suspect]
     Active Substance: OXALIPLATIN
     Indication: METASTASES TO PERITONEUM
  5. IRINOTECAN [Suspect]
     Active Substance: IRINOTECAN
     Indication: METASTASES TO PERITONEUM
  6. BEVACIZUMAB. [Concomitant]
     Active Substance: BEVACIZUMAB
     Indication: METASTASES TO PERITONEUM
  7. MAGNESIUM OXIDE. [Concomitant]
     Active Substance: MAGNESIUM OXIDE
     Dosage: RECEIVED JUST BEFORE THE ONSET OF ILD
     Route: 048
  8. LEUCOVORIN. [Suspect]
     Active Substance: LEUCOVORIN
     Indication: COLON CANCER
     Dosage: AS PART OF 12 CYCLES OF MFOLFOX6 AND 3 CYCLES OF FOLFIRI REGIMEN
     Route: 065
  9. LEUCOVORIN. [Suspect]
     Active Substance: LEUCOVORIN
     Indication: METASTASES TO PERITONEUM
  10. PALONOSETRON. [Concomitant]
     Active Substance: PALONOSETRON HYDROCHLORIDE
     Indication: SUPPORTIVE CARE
     Route: 042
  11. LACTIC ACID BACTERIA [Concomitant]
     Dosage: RECEIVED JUST BEFORE THE ONSET OF ILD
     Route: 048
  12. 5-FLUOROURACIL [Suspect]
     Active Substance: FLUOROURACIL
     Indication: COLON CANCER
     Dosage: AS PART OF 12 CYCLES OF MFOLFOX6 AND 3 CYCLES OF FOLFIRI REGIMEN
     Route: 050
  13. BEVACIZUMAB. [Concomitant]
     Active Substance: BEVACIZUMAB
     Indication: COLON CANCER
     Dosage: ALONG WITH 10 CYCLES OF MFOLFOX6 AND 1 CYCLE OF FOLFIRI REGIMEN
     Route: 065
  14. DEXAMETHASONE. [Concomitant]
     Active Substance: DEXAMETHASONE
     Indication: SUPPORTIVE CARE
     Route: 042
  15. BROTIZOLAM [Concomitant]
     Active Substance: BROTIZOLAM
     Dosage: RECEIVED JUST BEFORE THE ONSET OF ILD
     Route: 048
  16. OXALIPLATIN. [Suspect]
     Active Substance: OXALIPLATIN
     Indication: COLON CANCER
     Dosage: AS PART OF 12 CYCLES OF MFOLFOX6 AND 3 CYCLES OF FOLFIRI REGIMEN
     Route: 065

REACTIONS (2)
  - Neuropathy peripheral [Unknown]
  - Interstitial lung disease [Recovered/Resolved]
